FAERS Safety Report 8153948-9 (Version None)
Quarter: 2012Q1

REPORT INFORMATION
  Report Type: 
  Country: None (occurrence: None)
  Receive Date: 20120221
  Receipt Date: 20120221
  Transmission Date: 20120608
  Serious: Yes (Hospitalization)
  Sender: FDA-Public Use
  Company Number: None

PATIENT
  Age: 70 Year
  Sex: Female
  Weight: 67.131 kg

DRUGS (1)
  1. AMOXICILLIN AND CLAVULANATE POTASSIUM [Suspect]
     Indication: SINUS DISORDER
     Dosage: ONE TABLET
     Route: 048
     Dates: start: 20120215, end: 20120215

REACTIONS (3)
  - CHEST DISCOMFORT [None]
  - RASH ERYTHEMATOUS [None]
  - HAEMORRHAGE [None]
